FAERS Safety Report 8992139 (Version 3)
Quarter: 2013Q1

REPORT INFORMATION
  Report Type: Report from Study
  Country: IE (occurrence: IE)
  Receive Date: 20121231
  Receipt Date: 20130208
  Transmission Date: 20140127
  Serious: Yes (Hospitalization)
  Sender: FDA-Public Use
  Company Number: IE-BAYER-2012-134351

PATIENT
  Age: 51 Year
  Sex: Male
  Weight: 76 kg

DRUGS (9)
  1. SORAFENIB (RAF KINASE INHIBITOR) [Suspect]
     Indication: GASTRIC CANCER RECURRENT
     Dosage: 400 MG, QD
     Route: 048
     Dates: start: 20121106, end: 20121220
  2. ZIMOVANE [Concomitant]
     Dosage: 7.5 MG NOCTE
  3. MOTILIUM [Concomitant]
     Dosage: 20 MG, PRN
  4. CYCLIZINE [Concomitant]
     Dosage: 50 MG, TDS/PRN
  5. LACTULOSE [Concomitant]
     Dosage: 15 ML, BID
  6. MST [MORPHINE SULFATE] [Concomitant]
     Dosage: 10 MG, BD
  7. DIFENE [Concomitant]
     Dosage: 75 MG, TDS
  8. MOVICOL [Concomitant]
     Dosage: 1 TAB, PRN
  9. SEVREDOL [Concomitant]
     Dosage: 5-10MG QDS

REACTIONS (4)
  - Oesophagitis [Recovered/Resolved]
  - Vomiting [Recovered/Resolved]
  - Abdominal pain upper [Recovered/Resolved]
  - Dysphagia [Recovered/Resolved]
